FAERS Safety Report 6502625-6 (Version None)
Quarter: 2009Q4

REPORT INFORMATION
  Report Type: 
  Country: None (occurrence: None)
  Receive Date: 20091127
  Receipt Date: 20090818
  Transmission Date: 20100525
  Serious: No
  Sender: FDA-Public Use
  Company Number: 001570

PATIENT

DRUGS (1)
  1. LACOSAMIDE [Suspect]
     Indication: CONVULSION
     Dosage: (25 MG BID ORAL)
     Route: 048

REACTIONS (2)
  - ABNORMAL BEHAVIOUR [None]
  - AGITATION [None]
